FAERS Safety Report 7846772 (Version 5)
Quarter: 2013Q4

REPORT INFORMATION
  Report Type: Spontaneous
  Country: US (occurrence: US)
  Receive Date: 20110308
  Receipt Date: 20131108
  Transmission Date: 20140711
  Serious: Yes (Death, Other)
  Sender: FDA-Public Use
  Company Number: US-PURDUE-USA-2011-0064711

PATIENT
  Age: 50 Year
  Sex: Female

DRUGS (7)
  1. OXYCODONE HYDROCHLORIDE (SIMILAR TO NDA 22-272) [Suspect]
     Indication: PRODUCT USED FOR UNKNOWN INDICATION
  2. VALIUM /00017001/ [Suspect]
     Indication: PRODUCT USED FOR UNKNOWN INDICATION
  3. LORTAB /00607101/ [Suspect]
     Indication: PRODUCT USED FOR UNKNOWN INDICATION
  4. AMBIEN [Suspect]
     Indication: PRODUCT USED FOR UNKNOWN INDICATION
  5. PROMETHAZINE [Suspect]
     Indication: PRODUCT USED FOR UNKNOWN INDICATION
  6. PERCOCET /00867901/ [Suspect]
     Indication: PRODUCT USED FOR UNKNOWN INDICATION
  7. FENTANYL [Suspect]
     Indication: PRODUCT USED FOR UNKNOWN INDICATION

REACTIONS (4)
  - Overdose [Fatal]
  - Cardiac disorder [Fatal]
  - Respiratory arrest [Unknown]
  - Loss of consciousness [Unknown]
